FAERS Safety Report 9207970 (Version 2)
Quarter: 2013Q4

REPORT INFORMATION
  Report Type: Spontaneous
  Country: FR (occurrence: FR)
  Receive Date: 20130403
  Receipt Date: 20131126
  Transmission Date: 20140711
  Serious: Yes (Hospitalization)
  Sender: FDA-Public Use
  Company Number: FR-VERTEX PHARMACEUTICALS INC.-2013-004433

PATIENT
  Age: 84 Year
  Sex: Male
  Weight: 66 kg

DRUGS (9)
  1. INCIVO [Suspect]
     Indication: HEPATIC CIRRHOSIS
     Route: 048
     Dates: start: 2011
  2. COPEGUS [Suspect]
     Indication: HEPATITIS C
     Dosage: 800 MG, QD
     Route: 065
     Dates: start: 20111215
  3. PEGASYS [Concomitant]
     Indication: HEPATIC CIRRHOSIS
     Dosage: UNK, QW
     Route: 065
     Dates: start: 20111114
  4. TOCO [Concomitant]
     Indication: INSULIN RESISTANCE
     Dosage: DOSAGE FORM: TABLET
     Route: 065
     Dates: start: 20030626
  5. MODURETIC [Concomitant]
     Indication: HYPERTENSION
     Dosage: 0.5 DF, QD
     Route: 065
  6. ATENOLOL [Concomitant]
     Indication: HYPERTENSION
     Dosage: 1 DF, QD
     Route: 065
  7. KARDEGIC [Concomitant]
     Indication: HYPERTENSION
     Dosage: 75 MG, QD
     Route: 065
  8. UVEDOSE [Concomitant]
     Indication: VITAMIN D DEFICIENCY
     Dosage: 100000 IU, 1DOSE PER MONTH
     Route: 065
     Dates: start: 20111017
  9. DOLIPRANE [Concomitant]
     Indication: ANTIVIRAL PROPHYLAXIS
     Dosage: DOSAGE FORM: UNSPECIFIED
     Route: 065
     Dates: start: 20111017

REACTIONS (3)
  - Platelet count decreased [Unknown]
  - Rash [Unknown]
  - Anaemia [Recovered/Resolved]
